FAERS Safety Report 8007971-5 (Version None)
Quarter: 2011Q4

REPORT INFORMATION
  Report Type: 
  Country: None (occurrence: None)
  Receive Date: 20111227
  Receipt Date: 20111212
  Transmission Date: 20120403
  Serious: Yes (Hospitalization, Other)
  Sender: FDA-Public Use
  Company Number: PHHY2010JP80210

PATIENT
  Sex: Male
  Weight: 53 kg

DRUGS (6)
  1. GLEEVEC [Suspect]
     Dosage: 300 MG,DAILY
     Route: 048
     Dates: start: 20110412
  2. GLEEVEC [Suspect]
     Dosage: 600 MG,DAILY
     Route: 048
     Dates: start: 20090701, end: 20091007
  3. GLEEVEC [Suspect]
     Dosage: 400 MG,DAILY
     Route: 048
     Dates: start: 20100608
  4. GLEEVEC [Suspect]
     Indication: GASTROINTESTINAL STROMAL TUMOUR
     Dosage: 400 MG,DAILY
     Route: 048
     Dates: start: 20080822
  5. GLEEVEC [Suspect]
     Dosage: 600 MG,DAILY
     Route: 048
     Dates: start: 20091127
  6. GLEEVEC [Suspect]
     Dosage: 400 MG,DAILY
     Route: 048
     Dates: start: 20110308

REACTIONS (13)
  - PYREXIA [None]
  - MELAENA [None]
  - ASCITES [None]
  - NEOPLASM MALIGNANT [None]
  - BLOOD ALKALINE PHOSPHATASE INCREASED [None]
  - HAEMATEMESIS [None]
  - SMALL INTESTINAL HAEMORRHAGE [None]
  - ABDOMINAL PAIN [None]
  - NEOPLASM PROGRESSION [None]
  - PLEURAL EFFUSION [None]
  - PERITONITIS BACTERIAL [None]
  - ANAEMIA [None]
  - TUMOUR HAEMORRHAGE [None]
